FAERS Safety Report 6753056-5 (Version None)
Quarter: 2010Q2

REPORT INFORMATION
  Report Type: 
  Country: None (occurrence: None)
  Receive Date: 20100603
  Receipt Date: 20100528
  Transmission Date: 20101027
  Serious: Yes (Hospitalization)
  Sender: FDA-Public Use
  Company Number: US-JNJFOC-20100600112

PATIENT
  Sex: Female
  Weight: 116.12 kg

DRUGS (12)
  1. FENTANYL CITRATE [Suspect]
     Indication: FATIGUE
     Route: 062
  2. FENTANYL CITRATE [Suspect]
     Indication: FIBROMYALGIA
     Route: 062
  3. FENTANYL CITRATE [Suspect]
     Dosage: 100UG/HR+25UG/HR EVERY 72 HOURS
     Route: 062
  4. FENTANYL CITRATE [Suspect]
     Dosage: 100UG/HR+25UG/HR EVERY 72 HOURS
     Route: 062
  5. DURAGESIC-100 [Suspect]
     Indication: DRUG USE FOR UNKNOWN INDICATION
     Route: 062
  6. DURAGESIC-100 [Suspect]
     Dosage: 100UG/HR+25UG/HR
     Route: 062
  7. DURAGESIC-100 [Suspect]
     Route: 062
  8. DURAGESIC-100 [Suspect]
     Route: 062
  9. DURAGESIC-100 [Suspect]
     Route: 062
  10. UNKNOWN MEDICATION [Concomitant]
     Route: 065
  11. LYRICA [Concomitant]
     Indication: FIBROMYALGIA
     Route: 048
  12. MOBIC [Concomitant]
     Indication: FIBROMYALGIA
     Route: 048

REACTIONS (2)
  - CHEST PAIN [None]
  - EMPYEMA [None]
